FAERS Safety Report 8357648-1 (Version None)
Quarter: 2012Q2

REPORT INFORMATION
  Report Type: 
  Country: None (occurrence: None)
  Receive Date: 20120514
  Receipt Date: 20120426
  Transmission Date: 20120825
  Serious: No
  Sender: FDA-Public Use
  Company Number: US-BAYER-2012-044637

PATIENT
  Age: 13 Year
  Sex: Female

DRUGS (4)
  1. MOTRIN [Concomitant]
  2. NAPROXEN SODIUM [Suspect]
     Indication: DYSMENORRHOEA
     Route: 048
  3. ACETAMINOPHEN [Concomitant]
  4. IBUPROFEN [Concomitant]

REACTIONS (1)
  - DYSMENORRHOEA [None]
